FAERS Safety Report 5478653-9 (Version None)
Quarter: 2007Q4

REPORT INFORMATION
  Report Type: 
  Country: None (occurrence: None)
  Receive Date: 20071005
  Receipt Date: 20070906
  Transmission Date: 20080405
  Serious: Yes (Hospitalization)
  Sender: FDA-Public Use
  Company Number: US-GENENTECH-245067

PATIENT
  Age: 59 Year
  Sex: Female
  Weight: 63.6 kg

DRUGS (11)
  1. BEVACIZUMAB [Suspect]
     Indication: BREAST CANCER
     Dosage: 960 MG/KG, UNK
     Route: 042
     Dates: start: 20070702
  2. HERCEPTIN [Suspect]
     Indication: BREAST CANCER
     Dosage: 512 MG/KG, UNK
     Route: 042
     Dates: start: 20070703
  3. DOCETAXEL [Suspect]
     Indication: BREAST CANCER
     Dosage: 120 MG/M2, UNK
     Route: 042
     Dates: start: 20070702
  4. CARBOPLATIN [Suspect]
     Indication: BREAST CANCER
     Dosage: 514 MG/ML, UNK
     Route: 042
     Dates: start: 20070702
  5. PEGFILGRASTIM [Concomitant]
     Indication: DRUG USE FOR UNKNOWN INDICATION
     Dates: start: 20070703
  6. ZOFRAN [Concomitant]
     Indication: DRUG USE FOR UNKNOWN INDICATION
  7. COMPAZINE [Concomitant]
     Indication: DRUG USE FOR UNKNOWN INDICATION
  8. EMEND [Concomitant]
     Indication: DRUG USE FOR UNKNOWN INDICATION
  9. OXYCODONE HCL [Concomitant]
     Indication: DRUG USE FOR UNKNOWN INDICATION
  10. DEXAMETHASONE 0.5MG TAB [Concomitant]
     Indication: DRUG USE FOR UNKNOWN INDICATION
  11. SERTRALINE HCL [Concomitant]

REACTIONS (2)
  - ABDOMINAL PAIN [None]
  - CHEST PAIN [None]
